FAERS Safety Report 26011845 (Version 2)
Quarter: 2025Q4

REPORT INFORMATION
  Report Type: Spontaneous
  Country: BR (occurrence: BR)
  Receive Date: 20251107
  Receipt Date: 20251210
  Transmission Date: 20260118
  Serious: Yes (Other)
  Sender: PFIZER
  Company Number: BR-PFIZER INC-202500215913

PATIENT
  Age: 49 Year
  Sex: Female
  Weight: 79.5 kg

DRUGS (1)
  1. PAXLOVID [Suspect]
     Active Substance: NIRMATRELVIR\RITONAVIR
     Indication: COVID-19 treatment
     Dosage: [NIRMATRELVIR 300 MG]/[RITONAVIR 100 MG]; 2X/DAY
     Route: 048
     Dates: start: 20251025, end: 20251029

REACTIONS (19)
  - Abdominal discomfort [Recovered/Resolved]
  - Dyspepsia [Recovered/Resolved]
  - Nausea [Recovered/Resolved]
  - Dizziness [Recovered/Resolved]
  - Headache [Recovered/Resolved]
  - Asthenia [Recovered/Resolved]
  - Skin lesion [Recovering/Resolving]
  - Pyrexia [Recovered/Resolved]
  - Tongue coated [Recovering/Resolving]
  - Tongue disorder [Recovering/Resolving]
  - Rash [Recovering/Resolving]
  - Ageusia [Recovered/Resolved]
  - Anosmia [Recovered/Resolved]
  - Vision blurred [Recovering/Resolving]
  - Hyperhidrosis [Recovering/Resolving]
  - Skin disorder [Recovering/Resolving]
  - Hair disorder [Recovering/Resolving]
  - Sensitive skin [Recovering/Resolving]
  - Weight decreased [Unknown]

NARRATIVE: CASE EVENT DATE: 20251001
